FAERS Safety Report 13334750 (Version 3)
Quarter: 2017Q2

REPORT INFORMATION
  Report Type: Report from Study
  Country: US (occurrence: US)
  Receive Date: 20170314
  Receipt Date: 20170418
  Transmission Date: 20170830
  Serious: Yes (Hospitalization, Other)
  Sender: FDA-Public Use
  Company Number: US-BIOGEN-2016BI00230153

PATIENT
  Age: 37 Year
  Sex: Female

DRUGS (2)
  1. TYSABRI [Suspect]
     Active Substance: NATALIZUMAB
     Indication: MULTIPLE SCLEROSIS
     Route: 042
     Dates: start: 20090224, end: 20140519
  2. TYSABRI [Suspect]
     Active Substance: NATALIZUMAB
     Dosage: INFUSED OVER 1 HOUR
     Route: 042
     Dates: start: 20141029, end: 20160215

REACTIONS (5)
  - Hyperemesis gravidarum [Recovered/Resolved]
  - Maternal exposure during pregnancy [Recovered/Resolved]
  - Haemorrhage [Recovered/Resolved]
  - Procedural pain [Recovered/Resolved]
  - Pre-eclampsia [Unknown]

NARRATIVE: CASE EVENT DATE: 2016
